FAERS Safety Report 5928020-6 (Version None)
Quarter: 2008Q4

REPORT INFORMATION
  Report Type: 
  Country: None (occurrence: None)
  Receive Date: 20081022
  Receipt Date: 20081022
  Transmission Date: 20090506
  Serious: Yes (Hospitalization)
  Sender: FDA-Public Use
  Company Number: None

PATIENT
  Sex: Male
  Weight: 115 kg

DRUGS (1)
  1. INTRON A [Suspect]
     Dosage: 250 MILLION IU

REACTIONS (1)
  - VERTIGO [None]
